FAERS Safety Report 9608383 (Version 2)
Quarter: 2013Q4

REPORT INFORMATION
  Report Type: Spontaneous
  Country: US (occurrence: US)
  Receive Date: 20131009
  Receipt Date: 20131009
  Transmission Date: 20140711
  Serious: No
  Sender: FDA-Public Use
  Company Number: US-PURDUE-USA-2012-0092824

PATIENT
  Age: 36 Year
  Sex: Female
  Weight: 76.19 kg

DRUGS (1)
  1. BUTRANS [Suspect]
     Indication: NECK PAIN
     Dosage: 10 MCG, UNK
     Route: 062
     Dates: start: 20120523, end: 20120829

REACTIONS (1)
  - Rash [Recovered/Resolved]
